FAERS Safety Report 6855139-8 (Version None)
Quarter: 2010Q3

REPORT INFORMATION
  Report Type: 
  Country: None (occurrence: None)
  Receive Date: 20100717
  Receipt Date: 20081125
  Transmission Date: 20110219
  Serious: Yes (Life-Threatening)
  Sender: FDA-Public Use
  Company Number: US-PFIZER INC-2007107655

PATIENT
  Age: 56 Year
  Sex: Male
  Weight: 70.295 kg

DRUGS (1)
  1. CHANTIX [Suspect]
     Indication: SMOKING CESSATION THERAPY
     Dosage: 1 MG, 2X/DAY
     Route: 048
     Dates: start: 20071005, end: 20071014

REACTIONS (3)
  - DEPRESSION [None]
  - DIZZINESS [None]
  - SUICIDAL IDEATION [None]
